FAERS Safety Report 7442653-X (Version None)
Quarter: 2011Q2

REPORT INFORMATION
  Report Type: 
  Country: None (occurrence: None)
  Receive Date: 20110428
  Receipt Date: 20110422
  Transmission Date: 20111010
  Serious: Yes (Other)
  Sender: FDA-Public Use
  Company Number: BR-AMGEN-QUU399741

PATIENT
  Age: 14 Year
  Sex: Male
  Weight: 47 kg

DRUGS (1)
  1. GRANULOKINE [Suspect]
     Indication: NEUTROPENIA
     Dosage: UNK UNK, UNK
     Route: 058
     Dates: start: 20020101, end: 20090927

REACTIONS (2)
  - ARTHRALGIA [None]
  - NEUTROPHIL COUNT DECREASED [None]
